FAERS Safety Report 6361644-3 (Version None)
Quarter: 2009Q3

REPORT INFORMATION
  Report Type: 
  Country: None (occurrence: None)
  Receive Date: 20090918
  Receipt Date: 20090907
  Transmission Date: 20100115
  Serious: Yes (Other)
  Sender: FDA-Public Use
  Company Number: DE-PFIZER INC-2009261191

PATIENT
  Age: 47 Year

DRUGS (2)
  1. CHAMPIX [Suspect]
     Indication: SMOKING CESSATION THERAPY
     Dosage: 1 MG, 1X/DAY
     Route: 048
     Dates: start: 20090801
  2. PANTOZOL [Concomitant]
     Dosage: UNK

REACTIONS (4)
  - ABDOMINAL SYMPTOM [None]
  - DIZZINESS POSTURAL [None]
  - HEART RATE INCREASED [None]
  - ORTHOSTATIC HYPERTENSION [None]
